FAERS Safety Report 4674014-0 (Version None)
Quarter: 2005Q2

REPORT INFORMATION
  Report Type: 
  Country: None (occurrence: None)
  Receive Date: 20050525
  Receipt Date: 20050512
  Transmission Date: 20051028
  Serious: Yes (Life-Threatening, Hospitalization, Other)
  Sender: FDA-Public Use
  Company Number: 2005062624

PATIENT
  Sex: Female
  Weight: 93 kg

DRUGS (4)
  1. ZITHROMAX [Suspect]
     Indication: GASTROINTESTINAL INFECTION
     Dosage: (250 MG), ORAL
     Route: 048
     Dates: start: 20050107, end: 20050109
  2. BISOPROLOL (BISOPROLOL) [Concomitant]
  3. METOCLOPRAMIDE HYDROCHLORIDE [Concomitant]
  4. RANIBETA (RANITIDINE) [Concomitant]

REACTIONS (16)
  - ANOREXIA [None]
  - ASTHENIA [None]
  - CONDITION AGGRAVATED [None]
  - CUSHING'S SYNDROME [None]
  - DEPRESSED MOOD [None]
  - FATIGUE [None]
  - GRANULOMATOUS LIVER DISEASE [None]
  - HEPATIC STEATOSIS [None]
  - HYPOGEUSIA [None]
  - HYPOSMIA [None]
  - NAUSEA [None]
  - NEPHRITIS INTERSTITIAL [None]
  - NEPHROGENIC ANAEMIA [None]
  - PROTEINURIA [None]
  - RENAL FAILURE ACUTE [None]
  - SARCOIDOSIS [None]
